FAERS Safety Report 5290660-8 (Version None)
Quarter: 2007Q2

REPORT INFORMATION
  Report Type: 
  Country: None (occurrence: None)
  Receive Date: 20070405
  Receipt Date: 20070405
  Transmission Date: 20071010
  Serious: Yes (Life-Threatening, Hospitalization)
  Sender: FDA-Public Use
  Company Number: None

PATIENT
  Age: 63 Year
  Sex: Female

DRUGS (17)
  1. WARFARIN SODIUM [Suspect]
     Indication: THROMBOSIS PROPHYLAXIS
     Dosage: 1.5 MG  PO  QHS
     Route: 048
  2. NEXIUM [Concomitant]
  3. ZOFRAN [Concomitant]
  4. PRANDIN [Concomitant]
  5. TOPROL-XL [Concomitant]
  6. DIOVAN [Concomitant]
  7. ATACAND [Concomitant]
  8. AZITHROMYCIN [Concomitant]
  9. VALCYTE [Concomitant]
  10. BACTRIM [Concomitant]
  11. PREDNISONE TAB [Concomitant]
  12. CELLCEPT [Concomitant]
  13. PROGRAF [Concomitant]
  14. AMBIEN [Concomitant]
  15. DILAUDID [Concomitant]
  16. LEXAPRO [Concomitant]
  17. CLONOPIN [Concomitant]

REACTIONS (3)
  - ECCHYMOSIS [None]
  - EPISTAXIS [None]
  - INTERNATIONAL NORMALISED RATIO INCREASED [None]
